FAERS Safety Report 9373583 (Version 1)
Quarter: 2013Q2

REPORT INFORMATION
  Report Type: Spontaneous
  Country: GB (occurrence: GB)
  Receive Date: 20130627
  Receipt Date: 20130627
  Transmission Date: 20140414
  Serious: Yes (Hospitalization, Disabling)
  Sender: FDA-Public Use
  Company Number: PHHY2013GB064004

PATIENT
  Age: 25 Year
  Sex: Female

DRUGS (8)
  1. QUETIAPINE [Suspect]
     Indication: PSYCHOTIC DISORDER
     Dosage: 300 MG
     Route: 048
     Dates: start: 20130208
  2. CLARITHROMYCIN [Concomitant]
  3. MIRTAZAPINE [Concomitant]
  4. CODEINE PHOSPHATE [Concomitant]
  5. CYCLIZINE HYDROCHLORIDE [Concomitant]
  6. MEBEVERINE [Concomitant]
  7. TRIMETHOPRIM [Concomitant]
  8. PROCYCLIDINE [Concomitant]

REACTIONS (1)
  - Myositis [Recovering/Resolving]
